APPROVED DRUG PRODUCT: VENXXIVA
Active Ingredient: TIOPRONIN
Strength: 100MG
Dosage Form/Route: TABLET, DELAYED RELEASE;ORAL
Application: A216990 | Product #001 | TE Code: AB
Applicant: TORRENT PHARMACEUTICALS LTD
Approved: Jan 30, 2024 | RLD: No | RS: No | Type: RX